FAERS Safety Report 12611665 (Version 2)
Quarter: 2016Q3

REPORT INFORMATION
  Report Type: Spontaneous
  Country: DE (occurrence: DE)
  Receive Date: 20160801
  Receipt Date: 20160922
  Transmission Date: 20161109
  Serious: Yes (Hospitalization)
  Sender: FDA-Public Use
  Company Number: DE-NOVOPROD-502422

PATIENT
  Age: 48 Year
  Sex: Female
  Weight: 62 kg

DRUGS (5)
  1. NOVORAPID [Suspect]
     Active Substance: INSULIN ASPART
     Dosage: UNK
     Dates: start: 20160719
  2. L-THYROXIN [Concomitant]
     Active Substance: LEVOTHYROXINE SODIUM
  3. NOVORAPID [Suspect]
     Active Substance: INSULIN ASPART
     Indication: TYPE 1 DIABETES MELLITUS
     Dosage: 30 IU, QD
     Route: 058
     Dates: end: 20160714
  4. FORXIGA [Concomitant]
     Active Substance: DAPAGLIFLOZIN
  5. ATORVASTATIN HENNIG [Concomitant]

REACTIONS (5)
  - Peritonitis [Recovered/Resolved]
  - Diabetic ketoacidosis [Recovered/Resolved]
  - Gastroenteritis [Recovered/Resolved]
  - Sepsis [Recovered/Resolved]
  - Diabetic gastroenteropathy [Recovered/Resolved]

NARRATIVE: CASE EVENT DATE: 20160711
